FAERS Safety Report 5071666-0 (Version None)
Quarter: 2006Q3

REPORT INFORMATION
  Report Type: 
  Country: None (occurrence: None)
  Receive Date: 20060801
  Receipt Date: 20060719
  Transmission Date: 20061208
  Serious: Yes (Hospitalization, Other)
  Sender: FDA-Public Use
  Company Number: 2006054823

PATIENT
  Age: 65 Year
  Sex: Female

DRUGS (10)
  1. VFEND [Suspect]
     Indication: BRONCHOPULMONARY ASPERGILLOSIS
     Dosage: 100 MG (50 MG, 2 IN 1D), INTRAVENOUS - SEE IMAGE
     Route: 042
     Dates: start: 20050923, end: 20050927
  2. VFEND [Suspect]
     Indication: BRONCHOPULMONARY ASPERGILLOSIS
     Dosage: 100 MG (50 MG, 2 IN 1D), INTRAVENOUS - SEE IMAGE
     Route: 042
     Dates: start: 20051006
  3. VFEND [Suspect]
     Indication: BRONCHOPULMONARY ASPERGILLOSIS
     Dosage: 400 MG (2 IN 1 D), ORAL
     Route: 048
     Dates: start: 20050928, end: 20051005
  4. NEORAL [Suspect]
     Indication: INTERSTITIAL LUNG DISEASE
     Dosage: 50 MG (25 MG, 2 IN 1 D), ORAL
     Route: 048
     Dates: start: 20050610
  5. CORTICOSTEROIDS (CORTICOSTEROIDS) [Concomitant]
  6. PREDNISOLONE [Concomitant]
  7. FAMOTIDINE [Concomitant]
  8. ALENDRONATE SODIUM [Concomitant]
  9. SULFAMETHOXAZOLE + TRIMETHOPRIM [Concomitant]
  10. BLOPRESS (CADESARTAN CILEXETIL) [Concomitant]

REACTIONS (16)
  - BLOOD CHLORIDE DECREASED [None]
  - BLOOD PRESSURE INCREASED [None]
  - BLOOD SODIUM DECREASED [None]
  - CONVULSION [None]
  - DEPRESSED LEVEL OF CONSCIOUSNESS [None]
  - DRUG INEFFECTIVE [None]
  - DRUG INTERACTION [None]
  - ELECTROLYTE IMBALANCE [None]
  - GASTRIC ULCER [None]
  - HEART RATE INCREASED [None]
  - PULMONARY MYCOSIS [None]
  - PUPILLARY REFLEX IMPAIRED [None]
  - RESTLESSNESS [None]
  - REVERSIBLE POSTERIOR LEUKOENCEPHALOPATHY SYNDROME [None]
  - URINARY INCONTINENCE [None]
  - VOMITING [None]
